FAERS Safety Report 8990921 (Version 1)
Quarter: 2012Q4

REPORT INFORMATION
  Report Type: 
  Country: CL (occurrence: CL)
  Receive Date: 20121231
  Receipt Date: 20121231
  Transmission Date: 20130627
  Serious: Yes (Hospitalization, Other)
  Sender: FDA-Public Use
  Company Number: PHHY2012CL108672

PATIENT
  Age: 57 Year
  Sex: Male

DRUGS (3)
  1. LEPONEX [Suspect]
     Indication: SCHIZOPHRENIA
     Dosage: 400 mg, daily
     Route: 048
     Dates: start: 19920325
  2. ARIPIPRAZOLE [Concomitant]
     Dosage: 15 mg, morning
  3. VALPROIC ACID [Concomitant]
     Dosage: 500 mg, BID

REACTIONS (2)
  - Psychiatric decompensation [Recovered/Resolved]
  - Drug withdrawal syndrome [Recovered/Resolved]
